FAERS Safety Report 16089937 (Version 1)
Quarter: 2019Q1

REPORT INFORMATION
  Report Type: Spontaneous
  Country: US (occurrence: US)
  Receive Date: 20190319
  Receipt Date: 20190319
  Transmission Date: 20190418
  Serious: No
  Sender: FDA-Public Use
  Company Number: US-TEVA-2019-US-1019329

PATIENT
  Sex: Female
  Weight: 92.08 kg

DRUGS (1)
  1. CLOBETASOL PROPIONATE CREAM, USP 0.05% [Suspect]
     Active Substance: CLOBETASOL PROPIONATE
     Indication: ECZEMA

REACTIONS (1)
  - Drug ineffective [Unknown]
